FAERS Safety Report 9363201 (Version 2)
Quarter: 2013Q3

REPORT INFORMATION
  Report Type: Spontaneous
  Country: FR (occurrence: FR)
  Receive Date: 20130624
  Receipt Date: 20130716
  Transmission Date: 20140515
  Serious: Yes (Hospitalization)
  Sender: FDA-Public Use
  Company Number: FR-ACCORD-018194

PATIENT
  Age: 69 Year
  Sex: Male
  Weight: 75 kg

DRUGS (1)
  1. GEMCITABINE [Suspect]
     Indication: CHOLANGIOCARCINOMA
     Dosage: GEMCITABINE ACCORD 2000 MG, RECEIVED HIS SIXTH CHEMOTHERAPY ACCORDING TO GEMZAR PROTOCOL
     Route: 042
     Dates: start: 20130218

REACTIONS (4)
  - Thrombocytopenia [Recovering/Resolving]
  - Wrong drug administered [Recovering/Resolving]
  - Overdose [Recovering/Resolving]
  - Off label use [Unknown]
